FAERS Safety Report 26120931 (Version 2)
Quarter: 2025Q4

REPORT INFORMATION
  Report Type: Spontaneous
  Country: US (occurrence: US)
  Receive Date: 20251204
  Receipt Date: 20251204
  Transmission Date: 20260118
  Serious: Yes (Hospitalization)
  Sender: IPSEN BIOPHARMACEUTICALS, INC.
  Company Number: US-IPSEN Group, Research and Development-2025-10253

PATIENT
  Age: 68 Year
  Sex: Male
  Weight: 147.5 kg

DRUGS (25)
  1. TAZVERIK [Suspect]
     Active Substance: TAZEMETOSTAT HYDROBROMIDE
     Indication: Follicular lymphoma stage I
     Route: 048
     Dates: start: 20240610
  2. ALBUTEROL SULFATE [Concomitant]
     Active Substance: ALBUTEROL SULFATE
  3. AMITRIPTYLINE [Concomitant]
     Active Substance: AMITRIPTYLINE
  4. CYCLOBENZAPRINE [Concomitant]
     Active Substance: CYCLOBENZAPRINE
  5. DEXAMETHASONE [Concomitant]
     Active Substance: DEXAMETHASONE
  6. DOXYCYCLINE [Concomitant]
     Active Substance: DOXYCYCLINE
  7. DULOXETINE [Concomitant]
     Active Substance: DULOXETINE
  8. ELIQUIS [Concomitant]
     Active Substance: APIXABAN
  9. EPIPEN [Concomitant]
     Active Substance: EPINEPHRINE
  10. FLUTICASONE [Concomitant]
     Active Substance: FLUTICASONE
     Route: 045
  11. GUAIFENESIN [Concomitant]
     Active Substance: GUAIFENESIN
  12. ACETAMINOPHEN\HYDROCODONE [Concomitant]
     Active Substance: ACETAMINOPHEN\HYDROCODONE
  13. IBUPROFEN [Concomitant]
     Active Substance: IBUPROFEN
  14. LEVOTHYROXINE [Concomitant]
     Active Substance: LEVOTHYROXINE
  15. LYRICA [Concomitant]
     Active Substance: PREGABALIN
  16. MELATONIN [Concomitant]
     Active Substance: MELATONIN
  17. OXYBUTYNIN CHLORIDE [Concomitant]
     Active Substance: OXYBUTYNIN CHLORIDE
  18. PANTOPRAZOLE [Concomitant]
     Active Substance: PANTOPRAZOLE
  19. PREDNISONE [Concomitant]
     Active Substance: PREDNISONE
  20. TAMSULOSIN [Concomitant]
     Active Substance: TAMSULOSIN
  21. TRAMADOL [Concomitant]
     Active Substance: TRAMADOL
  22. TRELEGY ELLIPTA [Concomitant]
     Active Substance: FLUTICASONE FUROATE\UMECLIDINIUM BROMIDE\VILANTEROL TRIFENATATE
  23. VITAMIN D [Concomitant]
     Active Substance: VITAMIN D NOS
  24. AMOXICILLIN [Concomitant]
     Active Substance: AMOXICILLIN
  25. AMOXICILLIN\CLAVULANATE POTASSIUM [Concomitant]
     Active Substance: AMOXICILLIN\CLAVULANATE POTASSIUM

REACTIONS (2)
  - Hospitalisation [Unknown]
  - Pneumonia [Unknown]
